FAERS Safety Report 10514909 (Version 2)
Quarter: 2014Q4

REPORT INFORMATION
  Report Type: Report from Study
  Country: PH (occurrence: PH)
  Receive Date: 20141013
  Receipt Date: 20141013
  Transmission Date: 20150528
  Serious: Yes (Hospitalization, Other)
  Sender: FDA-Public Use
  Company Number: PHHY2014PH078131

PATIENT
  Sex: Female

DRUGS (2)
  1. GLIVEC [Suspect]
     Active Substance: IMATINIB MESYLATE
     Dosage: 800 MG, DAILY
     Route: 048
     Dates: start: 20100922, end: 20140616
  2. GLIVEC [Suspect]
     Active Substance: IMATINIB MESYLATE
     Indication: PRODUCT USED FOR UNKNOWN INDICATION
     Dosage: 400 MG, DAILY
     Route: 048
     Dates: start: 20100107, end: 20100922

REACTIONS (7)
  - Weight decreased [Unknown]
  - Haematochezia [Recovering/Resolving]
  - Haemoglobin decreased [Unknown]
  - Haemorrhage [Recovering/Resolving]
  - Tumour pain [Unknown]
  - White blood cell count decreased [Unknown]
  - Keloid scar [Unknown]
